FAERS Safety Report 6086614-4 (Version None)
Quarter: 2009Q1

REPORT INFORMATION
  Report Type: 
  Country: None (occurrence: None)
  Receive Date: 20090223
  Receipt Date: 20090209
  Transmission Date: 20090719
  Serious: Yes (Other)
  Sender: FDA-Public Use
  Company Number: BR-PFIZER INC-2009168825

PATIENT

DRUGS (6)
  1. FRONTAL [Suspect]
     Indication: NERVOUSNESS
     Dosage: UNK
     Route: 048
     Dates: start: 20010101
  2. FRONTAL [Suspect]
     Dosage: 1 MG, 1X/DAY
     Route: 048
     Dates: start: 20080601, end: 20090201
  3. FRONTAL XR [Suspect]
     Dosage: 1 MG, 1X/DAY
     Route: 048
     Dates: start: 20080601, end: 20090201
  4. OMEPRAZOLE [Concomitant]
     Dosage: UNK
     Dates: start: 20040101
  5. INSULIN [Concomitant]
     Dosage: UNK
     Dates: start: 20040101
  6. IRBESARTAN [Concomitant]
     Dosage: UNK
     Dates: start: 20040101

REACTIONS (2)
  - ABDOMINAL DISTENSION [None]
  - STENT PLACEMENT [None]
